APPROVED DRUG PRODUCT: NITROFURANTOIN
Active Ingredient: NITROFURANTOIN, MACROCRYSTALLINE
Strength: 100MG
Dosage Form/Route: CAPSULE;ORAL
Application: A217272 | Product #003 | TE Code: AB
Applicant: MANKIND PHARMA LTD
Approved: Mar 21, 2023 | RLD: No | RS: No | Type: RX